FAERS Safety Report 25126455 (Version 2)
Quarter: 2025Q3

REPORT INFORMATION
  Report Type: Report from Study
  Country: TW (occurrence: TW)
  Receive Date: 20250327
  Receipt Date: 20250803
  Transmission Date: 20251020
  Serious: Yes (Other)
  Sender: ALEXION PHARMACEUTICALS
  Company Number: TW-AstraZeneca-CH-00832645A

PATIENT
  Sex: Female

DRUGS (2)
  1. DURVALUMAB [Suspect]
     Active Substance: DURVALUMAB
     Dates: start: 20210902, end: 20250321
  2. DURVALUMAB [Suspect]
     Active Substance: DURVALUMAB
     Dates: start: 20210727, end: 20250321

REACTIONS (1)
  - Pleurisy [Unknown]
